FAERS Safety Report 7336399-6 (Version None)
Quarter: 2011Q1

REPORT INFORMATION
  Report Type: 
  Country: None (occurrence: None)
  Receive Date: 20110307
  Receipt Date: 20110209
  Transmission Date: 20110831
  Serious: No
  Sender: FDA-Public Use
  Company Number: US-B.I. PHARMACEUTICALS,INC./RIDGEFIELD-2011-BP-05328BP

PATIENT
  Sex: Male

DRUGS (7)
  1. ASA [Concomitant]
     Indication: PROPHYLAXIS
     Dosage: 325 MG
     Route: 048
  2. VERAPAMIL [Concomitant]
     Indication: VENTRICULAR FIBRILLATION
     Dosage: 240 MG
     Route: 048
  3. OMEGA 3'S [Concomitant]
     Indication: PROPHYLAXIS
     Route: 048
  4. GLYBURIDE AND METFORMIN HYDROCHLORIDE [Concomitant]
     Indication: DIABETES MELLITUS
     Route: 048
  5. LASIX [Concomitant]
     Indication: FLUID RETENTION
     Dosage: 80 MG
     Route: 048
  6. PRADAXA [Suspect]
     Indication: ATRIAL FIBRILLATION
     Dosage: 300 MG
     Route: 048
     Dates: start: 20110208
  7. OXYBUTYNIN [Concomitant]
     Indication: BLADDER DISORDER
     Dosage: 5 MG
     Route: 048

REACTIONS (1)
  - SOMNOLENCE [None]
